FAERS Safety Report 9456026 (Version 1)
Quarter: 2013Q3

REPORT INFORMATION
  Report Type: Spontaneous
  Country: BR (occurrence: None)
  Receive Date: 20130808
  Receipt Date: 20130808
  Transmission Date: 20140515
  Serious: Yes (Hospitalization)
  Sender: FDA-Public Use
  Company Number: DSU-2013-04195

PATIENT
  Age: 56 Year
  Sex: Male
  Weight: 79 kg

DRUGS (2)
  1. OLEMESARTAN [Suspect]
     Indication: PRODUCT USED FOR UNKNOWN INDICATION
     Route: 048
     Dates: start: 201305
  2. METFORMIN (METFORMIN) (METFORMIN) [Concomitant]
     Indication: RENAL DISORDER
     Dates: start: 201305

REACTIONS (2)
  - Ejection fraction decreased [None]
  - Cardiac operation [None]
